FAERS Safety Report 7197131-2 (Version None)
Quarter: 2010Q4

REPORT INFORMATION
  Report Type: 
  Country: None (occurrence: None)
  Receive Date: 20101224
  Receipt Date: 20101213
  Transmission Date: 20110411
  Serious: Yes (Hospitalization)
  Sender: FDA-Public Use
  Company Number: PHHY2010FR86680

PATIENT

DRUGS (1)
  1. GLEEVEC [Suspect]

REACTIONS (4)
  - DECREASED APPETITE [None]
  - INFLAMMATION [None]
  - PYREXIA [None]
  - WEIGHT DECREASED [None]
